FAERS Safety Report 25245460 (Version 1)
Quarter: 2025Q2

REPORT INFORMATION
  Report Type: Spontaneous
  Country: US (occurrence: None)
  Receive Date: 20250426
  Receipt Date: 20250426
  Transmission Date: 20250717
  Serious: Yes (Life-Threatening)
  Sender: FDA-CTU
  Company Number: None

PATIENT
  Age: 68 Year
  Sex: Female
  Weight: 119.25 kg

DRUGS (12)
  1. PAXLOVID [Suspect]
     Active Substance: NIRMATRELVIR\RITONAVIR
     Indication: COVID-19
     Dosage: FREQUENCY : TWICE A DAY;?
     Route: 048
     Dates: start: 20250326, end: 20250331
  2. PREDNISONE [Suspect]
     Active Substance: PREDNISONE
     Indication: COVID-19
     Route: 048
     Dates: start: 20250326, end: 20250331
  3. ALBUTEROL [Concomitant]
     Active Substance: ALBUTEROL
  4. ACETAMINOPHEN [Concomitant]
     Active Substance: ACETAMINOPHEN
  5. Extra Strength Benadryl [Concomitant]
  6. CALCIUM CARBONATE [Concomitant]
     Active Substance: CALCIUM CARBONATE
  7. TUMS [Concomitant]
     Active Substance: CALCIUM CARBONATE
  8. CLARITIN [Concomitant]
     Active Substance: LORATADINE
  9. CLOTRIMAZOLE [Concomitant]
     Active Substance: CLOTRIMAZOLE
  10. Glucocorticoid Mucus Relief [Concomitant]
  11. Max Nasa Spray Decongestant (Afrin) [Concomitant]
  12. Simethicone Chewable [Concomitant]

REACTIONS (3)
  - Asthma [None]
  - Throat tightness [None]
  - Drug interaction [None]

NARRATIVE: CASE EVENT DATE: 20250327
